FAERS Safety Report 6490547-9 (Version None)
Quarter: 2009Q4

REPORT INFORMATION
  Report Type: 
  Country: None (occurrence: None)
  Receive Date: 20091211
  Receipt Date: 20091201
  Transmission Date: 20100525
  Serious: Yes (Other)
  Sender: FDA-Public Use
  Company Number: CN-PFIZER INC-2009300413

PATIENT
  Age: 68 Year
  Sex: Male

DRUGS (2)
  1. SULPERAZON [Suspect]
     Indication: ANTI-INFECTIVE THERAPY
     Dosage: 2 G, 2X/DAY
     Route: 042
     Dates: start: 20091118, end: 20091118
  2. TINIDAZOLE [Suspect]

REACTIONS (2)
  - ALCOHOL INTOLERANCE [None]
  - MYOCARDIAL ISCHAEMIA [None]
